FAERS Safety Report 10052615 (Version 1)
Quarter: 2014Q1

REPORT INFORMATION
  Report Type: Spontaneous
  Country: GB (occurrence: None)
  Receive Date: 20140331
  Receipt Date: 20140331
  Transmission Date: 20141002
  Serious: Yes (Hospitalization, Other)
  Sender: FDA-Public Use
  Company Number: 2014P1002558

PATIENT
  Sex: Female

DRUGS (3)
  1. CIPROFLOXACIN [Suspect]
     Indication: DIVERTICULITIS
     Dates: start: 20130306, end: 2013
  2. IBUPROFEN [Concomitant]
  3. ASPIRIN [Concomitant]

REACTIONS (17)
  - Pelvic pain [None]
  - Groin pain [None]
  - Vertigo [None]
  - Syncope [None]
  - Diarrhoea [None]
  - Constipation [None]
  - Depression [None]
  - Deafness unilateral [None]
  - Cataract [None]
  - Vision blurred [None]
  - Aphasia [None]
  - Hyperhidrosis [None]
  - Weight decreased [None]
  - Pain in extremity [None]
  - Gait disturbance [None]
  - Pruritus [None]
  - Dry skin [None]
